FAERS Safety Report 15353077 (Version 2)
Quarter: 2018Q3

REPORT INFORMATION
  Report Type: Spontaneous
  Country: US (occurrence: US)
  Receive Date: 20180905
  Receipt Date: 20180920
  Transmission Date: 20181010
  Serious: Yes (Death)
  Sender: FDA-Public Use
  Company Number: US-JNJFOC-20180903656

PATIENT
  Age: 76 Year
  Sex: Female

DRUGS (28)
  1. NYSTATIN. [Concomitant]
     Active Substance: NYSTATIN
  2. TYLENOL [Concomitant]
     Active Substance: ACETAMINOPHEN
  3. ACYCLOVIR. [Concomitant]
     Active Substance: ACYCLOVIR
  4. ATORVASTATIN [Concomitant]
     Active Substance: ATORVASTATIN
  5. ECONAZOLE [Concomitant]
     Active Substance: ECONAZOLE
  6. KLOR?CON [Concomitant]
     Active Substance: POTASSIUM CHLORIDE
  7. COMBIVENT [Concomitant]
     Active Substance: ALBUTEROL SULFATE\IPRATROPIUM BROMIDE
  8. MUCINEX [Concomitant]
     Active Substance: GUAIFENESIN
  9. LEVOTHYROXINE. [Concomitant]
     Active Substance: LEVOTHYROXINE
  10. RANITIDINE. [Concomitant]
     Active Substance: RANITIDINE
  11. TOCOPHEROL [Concomitant]
     Active Substance: TOCOPHEROL
  12. HYDRALAZINE [Concomitant]
     Active Substance: HYDRALAZINE HYDROCHLORIDE
  13. NORCO [Concomitant]
     Active Substance: ACETAMINOPHEN\HYDROCODONE BITARTRATE
  14. ASCORBIC ACID. [Concomitant]
     Active Substance: ASCORBIC ACID
  15. CYANOCOBALAMIN. [Concomitant]
     Active Substance: CYANOCOBALAMIN
  16. PAROXETINE. [Concomitant]
     Active Substance: PAROXETINE
  17. VITAMIN B6 [Concomitant]
     Active Substance: PYRIDOXINE HYDROCHLORIDE
  18. ADVAIR HFA [Concomitant]
     Active Substance: FLUTICASONE PROPIONATE\SALMETEROL XINAFOATE
  19. VITAMIN D3 [Concomitant]
     Active Substance: CHOLECALCIFEROL
  20. BENADRYL [Concomitant]
     Active Substance: DIPHENHYDRAMINE HYDROCHLORIDE
  21. CALCIUM [Concomitant]
     Active Substance: CALCIUM
  22. VITAMIN B COMPLEX [Concomitant]
     Active Substance: CYANOCOBALAMIN\DEXPANTHENOL\NIACINAMIDE\PYRIDOXINE HYDROCHLORIDE\RIBOFLAVIN 5^-PHOSPHATE SODIUM\THIAMINE HYDROCHLORIDE\VITAMIN B COMPLEX
  23. ALPRAZOLAM. [Concomitant]
     Active Substance: ALPRAZOLAM
  24. BIOTIN [Concomitant]
     Active Substance: BIOTIN
  25. CITRACAL [Concomitant]
     Active Substance: CALCIUM CITRATE
  26. ZYRTEC [Concomitant]
     Active Substance: CETIRIZINE HYDROCHLORIDE
  27. FLONASE [Concomitant]
     Active Substance: FLUTICASONE PROPIONATE
  28. IMBRUVICA [Suspect]
     Active Substance: IBRUTINIB
     Indication: NON-HODGKIN^S LYMPHOMA
     Route: 048
     Dates: start: 20180524

REACTIONS (3)
  - Incorrect dose administered [Unknown]
  - Off label use [Unknown]
  - Death [Fatal]

NARRATIVE: CASE EVENT DATE: 20180524
